FAERS Safety Report 7474754-4 (Version None)
Quarter: 2011Q1

REPORT INFORMATION
  Report Type: 
  Country: None (occurrence: None)
  Receive Date: 20110302
  Receipt Date: 20101006
  Transmission Date: 20110831
  Serious: Yes (Death)
  Sender: FDA-Public Use
  Company Number: 163-21880-10092598

PATIENT
  Age: 86 Year
  Sex: Female

DRUGS (3)
  1. REVLIMID [Suspect]
     Indication: MULTIPLE MYELOMA
     Dosage: 15 MG, 1 IN 1 D, PO; 25-15MG, DAILY, PO; 10 MG, 1 IN 1 D, PO
     Route: 048
     Dates: start: 20100701, end: 20100808
  2. REVLIMID [Suspect]
     Indication: MULTIPLE MYELOMA
     Dosage: 15 MG, 1 IN 1 D, PO; 25-15MG, DAILY, PO; 10 MG, 1 IN 1 D, PO
     Route: 048
     Dates: start: 20100401, end: 20100101
  3. REVLIMID [Suspect]
     Indication: MULTIPLE MYELOMA
     Dosage: 15 MG, 1 IN 1 D, PO; 25-15MG, DAILY, PO; 10 MG, 1 IN 1 D, PO
     Route: 048
     Dates: start: 20090401

REACTIONS (1)
  - MULTIPLE MYELOMA [None]
